FAERS Safety Report 7275827-1 (Version None)
Quarter: 2011Q1

REPORT INFORMATION
  Report Type: 
  Country: None (occurrence: None)
  Receive Date: 20110204
  Receipt Date: 20110202
  Transmission Date: 20110831
  Serious: Yes (Other)
  Sender: FDA-Public Use
  Company Number: A0911649A

PATIENT
  Sex: Female

DRUGS (1)
  1. ALLI [Suspect]
     Dosage: 3CAP CUMULATIVE DOSE
     Route: 048

REACTIONS (5)
  - NAUSEA [None]
  - VOMITING [None]
  - PAIN [None]
  - MOBILITY DECREASED [None]
  - VAGINAL HAEMORRHAGE [None]
